FAERS Safety Report 8519550 (Version 2)
Quarter: 2012Q4

REPORT INFORMATION
  Report Type: 
  Country: US (occurrence: US)
  Receive Date: 20120418
  Receipt Date: 20121120
  Transmission Date: 20130627
  Serious: No
  Sender: FDA-Public Use
  Company Number: US-ASTRAZENECA-2010SE59018

PATIENT
  Age: 64 Year
  Sex: Female
  Weight: 74.4 kg

DRUGS (12)
  1. NEXIUM [Suspect]
     Indication: GASTROOESOPHAGEAL REFLUX DISEASE
     Route: 048
  2. OMEPRAZOLE [Suspect]
     Route: 048
  3. PRILOSEC OTC [Suspect]
     Route: 048
  4. ANTIDEPRESSANTS [Concomitant]
  5. NIASPAN [Concomitant]
  6. DOXEPIN [Concomitant]
  7. PAXIL [Concomitant]
  8. XANAX [Concomitant]
  9. ARICEPT [Concomitant]
  10. NAMENDA [Concomitant]
  11. FOLIC ACID [Concomitant]
  12. VITAMIN B12 [Concomitant]

REACTIONS (15)
  - Condition aggravated [Unknown]
  - Tongue coated [Unknown]
  - Weight decreased [Unknown]
  - Dyspepsia [Unknown]
  - Dyspepsia [Unknown]
  - Oral discomfort [Unknown]
  - Glossodynia [Unknown]
  - Throat irritation [Unknown]
  - Oral discomfort [Unknown]
  - Depression [Unknown]
  - Malaise [Unknown]
  - Drug ineffective [Unknown]
  - Wrong drug administered [Unknown]
  - Incorrect drug administration duration [Unknown]
  - Drug dose omission [Unknown]
